FAERS Safety Report 24795501 (Version 1)
Quarter: 2024Q4

REPORT INFORMATION
  Report Type: Spontaneous
  Country: JP (occurrence: JP)
  Receive Date: 20241231
  Receipt Date: 20241231
  Transmission Date: 20250114
  Serious: Yes (Other)
  Sender: CARA THERAPEUTICS
  Company Number: JP-CARA THERAPEUTICS, INC.-2024-00581-JP

PATIENT
  Age: 89 Year
  Sex: Male

DRUGS (1)
  1. KORSUVA [Suspect]
     Active Substance: DIFELIKEFALIN ACETATE
     Indication: Pruritus
     Dosage: 25 ?G
     Route: 042
     Dates: start: 20241126, end: 20241207

REACTIONS (1)
  - Dementia [Unknown]

NARRATIVE: CASE EVENT DATE: 20241207
